FAERS Safety Report 5711833-3 (Version None)
Quarter: 2008Q2

REPORT INFORMATION
  Report Type: 
  Country: None (occurrence: None)
  Receive Date: 20080421
  Receipt Date: 20080410
  Transmission Date: 20081010
  Serious: Yes (Disabling)
  Sender: FDA-Public Use
  Company Number: US-GILEAD-2007-0012612

PATIENT
  Age: 40 Year
  Sex: Male
  Weight: 75.364 kg

DRUGS (4)
  1. ATRIPLA [Suspect]
     Indication: HIV INFECTION
     Route: 048
     Dates: start: 20070221
  2. ALLEGRA D 24 HOUR [Concomitant]
     Indication: RHINITIS ALLERGIC
     Route: 048
     Dates: start: 20060101
  3. PRED FORTE EYE DROP [Concomitant]
     Route: 047
  4. FLONASE [Concomitant]
     Indication: RHINITIS ALLERGIC
     Route: 045
     Dates: start: 20060101

REACTIONS (3)
  - ALOPECIA AREATA [None]
  - ANAEMIA [None]
  - NEUROSYPHILIS [None]
